FAERS Safety Report 18319396 (Version 4)
Quarter: 2022Q2

REPORT INFORMATION
  Report Type: Report from Study
  Country: AR (occurrence: AR)
  Receive Date: 20200928
  Receipt Date: 20220616
  Transmission Date: 20220721
  Serious: Yes (Other)
  Sender: FDA-Public Use
  Company Number: None

PATIENT
  Sex: Female

DRUGS (33)
  1. COSENTYX [Suspect]
     Active Substance: SECUKINUMAB
     Indication: Psoriasis
     Dosage: 300 MG, QMO
     Route: 065
     Dates: start: 20180319
  2. COSENTYX [Suspect]
     Active Substance: SECUKINUMAB
     Indication: Psoriatic arthropathy
     Dosage: UNK
     Route: 065
     Dates: start: 20180326
  3. COSENTYX [Suspect]
     Active Substance: SECUKINUMAB
     Dosage: UNK
     Route: 065
     Dates: start: 20180402
  4. COSENTYX [Suspect]
     Active Substance: SECUKINUMAB
     Dosage: UNK
     Route: 065
     Dates: start: 20180409
  5. COSENTYX [Suspect]
     Active Substance: SECUKINUMAB
     Dosage: UNK
     Route: 065
     Dates: start: 20180509, end: 20190517
  6. COSENTYX [Suspect]
     Active Substance: SECUKINUMAB
     Dosage: 1 DOSAGE FORM, QMO 2(150 MG/1ML))
     Route: 065
     Dates: end: 201906
  7. COSENTYX [Suspect]
     Active Substance: SECUKINUMAB
     Dosage: UNK (18 TH T0 40 TH DOSES)
     Route: 065
     Dates: start: 20190702, end: 20210502
  8. COSENTYX [Suspect]
     Active Substance: SECUKINUMAB
     Dosage: UNK (41ST DOSE)
     Route: 065
     Dates: start: 20210602
  9. COSENTYX [Suspect]
     Active Substance: SECUKINUMAB
     Dosage: UNK (42ND DOSE)
     Route: 065
     Dates: start: 20210702
  10. COSENTYX [Suspect]
     Active Substance: SECUKINUMAB
     Dosage: UNK (43RD DOSE)
     Route: 065
     Dates: start: 20210730
  11. COSENTYX [Suspect]
     Active Substance: SECUKINUMAB
     Dosage: UNK (44TH DOSE)
     Route: 065
     Dates: start: 20210906
  12. COSENTYX [Suspect]
     Active Substance: SECUKINUMAB
     Dosage: UNK (45TH DOSE)
     Route: 065
     Dates: start: 20211006
  13. COSENTYX [Suspect]
     Active Substance: SECUKINUMAB
     Dosage: UNK (46TH DOSE)
     Route: 065
     Dates: start: 20211210
  14. COSENTYX [Suspect]
     Active Substance: SECUKINUMAB
     Dosage: UNK (47TH DOSE)
     Route: 065
     Dates: start: 20220110
  15. COSENTYX [Suspect]
     Active Substance: SECUKINUMAB
     Dosage: UNK (48TH DOSE)
     Route: 065
     Dates: start: 20220210
  16. COSENTYX [Suspect]
     Active Substance: SECUKINUMAB
     Dosage: 1 DOSAGE FORM, QMO 2(150 MG/1ML)) 49 TH DOSE
     Route: 065
     Dates: end: 20220310
  17. ROGASTRIL PLUS [Concomitant]
     Indication: Gastritis
     Dosage: 1 DOSAGE FORM, QD
     Route: 065
  18. ROGASTRIL PLUS [Concomitant]
     Indication: Duodenitis
  19. CLONAGIN [Concomitant]
     Indication: Anxiety disorder
     Dosage: 2 DOSAGE FORM, QD
     Route: 065
  20. VITAMIN D3 [Concomitant]
     Active Substance: CHOLECALCIFEROL
     Indication: Osteoporosis
     Dosage: 1 DOSAGE FORM, QMO (DRINKABLE VIAL AMPOULE)
     Route: 065
  21. RENTOP [Concomitant]
     Indication: Osteoporosis
     Dosage: 1 DOSAGE FORM, QMO
     Route: 065
  22. CALCIUM CARBONATE [Concomitant]
     Active Substance: CALCIUM CARBONATE
     Indication: Osteoporosis
     Dosage: 2 DOSAGE FORM, QD
     Route: 065
  23. FUROSEMIDE [Concomitant]
     Active Substance: FUROSEMIDE
     Indication: Essential hypertension
     Dosage: 1 DOSAGE FORM, QD
     Route: 065
  24. ASPIRIN [Concomitant]
     Active Substance: ASPIRIN
     Indication: Cerebrovascular disorder
     Dosage: 1 DOSAGE FORM, QD
     Route: 065
  25. SERETIDE [Concomitant]
     Active Substance: FLUTICASONE PROPIONATE\SALMETEROL XINAFOATE
     Indication: Asthma
     Dosage: 2 DOSAGE FORM, QD
     Route: 065
  26. SERETIDE [Concomitant]
     Active Substance: FLUTICASONE PROPIONATE\SALMETEROL XINAFOATE
     Indication: Chronic obstructive pulmonary disease
  27. LOSARTAN POTASSIUM [Concomitant]
     Active Substance: LOSARTAN POTASSIUM
     Indication: Schistosomiasis
     Dosage: 2 DOSAGE FORM, QD
     Route: 065
  28. REOVEX [Concomitant]
     Indication: Lipoprotein metabolism disorder
     Dosage: 1 DOSAGE FORM, QD
     Route: 065
  29. GLYBURIDE [Concomitant]
     Active Substance: GLYBURIDE
     Indication: Diabetes mellitus
     Dosage: 2 DOSAGE FORM, QD
     Route: 065
  30. DRAMAMINE [Concomitant]
     Active Substance: DIMENHYDRINATE
     Indication: Vertigo CNS origin
     Dosage: 2 DOSAGE FORM, QD
     Route: 065
  31. AUDIPAX [Concomitant]
     Indication: Vertigo CNS origin
     Dosage: 1 DOSAGE FORM, QD
     Route: 065
  32. CYCLO 3 [Concomitant]
     Active Substance: HESPERIDIN METHYLCHALCONE
     Indication: Lymphangitis
     Dosage: 2 UNK, QD
     Route: 065
  33. XELJANZ [Concomitant]
     Active Substance: TOFACITINIB CITRATE
     Indication: Psoriatic arthropathy
     Dosage: 1 DOSAGE FORM, QD
     Route: 065

REACTIONS (2)
  - Type 2 diabetes mellitus [Unknown]
  - Arthropathy [Unknown]
